FAERS Safety Report 4365903-5 (Version None)
Quarter: 2004Q2

REPORT INFORMATION
  Report Type: 
  Country: None (occurrence: None)
  Receive Date: 20040524
  Receipt Date: 20040301
  Transmission Date: 20050107
  Serious: No
  Sender: FDA-Public Use
  Company Number: SU-2004-002188

PATIENT
  Age: 76 Year
  Sex: Female
  Weight: 63.5036 kg

DRUGS (3)
  1. BENICAR [Suspect]
     Indication: HYPERTENSION
     Dosage: 10 MG HS PO
     Route: 048
     Dates: start: 20031001, end: 20040101
  2. BENICAR [Suspect]
     Indication: HYPERTENSION
     Dosage: 5 MG TID PO
     Route: 048
     Dates: start: 20040102
  3. GLUCOTROL [Concomitant]

REACTIONS (7)
  - BLADDER PAIN [None]
  - BURNING SENSATION [None]
  - DYSURIA [None]
  - HALITOSIS [None]
  - THROAT IRRITATION [None]
  - URINE ABNORMALITY [None]
  - VAGINAL BURNING SENSATION [None]
